FAERS Safety Report 9848360 (Version 1)
Quarter: 2014Q1

REPORT INFORMATION
  Report Type: Spontaneous
  Country: US (occurrence: None)
  Receive Date: 20140123
  Receipt Date: 20140123
  Transmission Date: 20141002
  Serious: No
  Sender: FDA-Public Use
  Company Number: None

PATIENT
  Sex: 0

DRUGS (1)
  1. ERLOTINIB [Suspect]

REACTIONS (5)
  - Dermatitis acneiform [None]
  - Diarrhoea [None]
  - Chills [None]
  - Pneumonia [None]
  - Fatigue [None]
